FAERS Safety Report 25099937 (Version 1)
Quarter: 2025Q1

REPORT INFORMATION
  Report Type: Spontaneous
  Country: US (occurrence: US)
  Receive Date: 20250320
  Receipt Date: 20250320
  Transmission Date: 20250409
  Serious: No
  Sender: REGENERON
  Company Number: US-REGENERON PHARMACEUTICALS, INC.-2025-013325

PATIENT
  Sex: Male

DRUGS (1)
  1. EYLEA HD [Suspect]
     Active Substance: AFLIBERCEPT
     Indication: Neovascular age-related macular degeneration
     Route: 031
     Dates: start: 202411

REACTIONS (5)
  - Photophobia [Unknown]
  - Visual impairment [Unknown]
  - Impaired driving ability [Unknown]
  - Lacrimation increased [Unknown]
  - Vision blurred [Unknown]
